FAERS Safety Report 11813552 (Version 4)
Quarter: 2016Q2

REPORT INFORMATION
  Report Type: Spontaneous
  Country: US (occurrence: US)
  Receive Date: 20151209
  Receipt Date: 20160531
  Transmission Date: 20160815
  Serious: No
  Sender: FDA-Public Use
  Company Number: US-VERTEX PHARMACEUTICALS-2015-005591

PATIENT
  Age: 19 Year
  Sex: Female

DRUGS (25)
  1. VITAMINS [Concomitant]
     Active Substance: VITAMINS
  2. SALINE [Concomitant]
     Active Substance: SODIUM CHLORIDE
  3. AZITHROMYCIN ANHYDROUS. [Concomitant]
     Active Substance: AZITHROMYCIN ANHYDROUS
  4. MELATONIN [Concomitant]
     Active Substance: MELATONIN
  5. VITAMIN E [Concomitant]
     Active Substance: .ALPHA.-TOCOPHEROL
  6. PULMOZYME [Concomitant]
     Active Substance: DORNASE ALFA
  7. MIRALAX [Concomitant]
     Active Substance: POLYETHYLENE GLYCOL 3350
  8. VITAMIN C [Concomitant]
     Active Substance: ASCORBIC ACID
  9. VITAMIN K [Concomitant]
     Active Substance: PHYTONADIONE
  10. ORKAMBI [Suspect]
     Active Substance: IVACAFTOR\LUMACAFTOR
     Indication: CYSTIC FIBROSIS
     Dosage: 400-250 MG, BID
     Route: 048
     Dates: start: 20151015
  11. VITAMIN D3 [Concomitant]
     Active Substance: CHOLECALCIFEROL
  12. CAYSTON [Concomitant]
     Active Substance: AZTREONAM
  13. ACETYLCYSTEINE. [Concomitant]
     Active Substance: ACETYLCYSTEINE
  14. MAGNESIUM [Concomitant]
     Active Substance: MAGNESIUM
  15. CULTURELLE [Concomitant]
     Active Substance: LACTOBACILLUS RHAMNOSUS
  16. ZENPEP [Concomitant]
     Active Substance: PANCRELIPASE AMYLASE\PANCRELIPASE LIPASE\PANCRELIPASE PROTEASE
  17. GINSENG [Concomitant]
     Active Substance: ASIAN GINSENG
  18. COENZYME Q10 [Concomitant]
     Active Substance: UBIDECARENONE
  19. FISH OIL [Concomitant]
     Active Substance: FISH OIL
  20. CALCIUM CARBONATE. [Concomitant]
     Active Substance: CALCIUM CARBONATE
  21. VITAMIN B12 + FOLIC ACID [Concomitant]
  22. INSULIN [Concomitant]
     Active Substance: INSULIN NOS
  23. ALBUTEROL. [Concomitant]
     Active Substance: ALBUTEROL
  24. FLONASE [Concomitant]
     Active Substance: FLUTICASONE PROPIONATE
  25. OMEGA 3 [Concomitant]
     Active Substance: OMEGA-3 FATTY ACIDS

REACTIONS (1)
  - Wheezing [Recovered/Resolved]

NARRATIVE: CASE EVENT DATE: 20151101
